FAERS Safety Report 8231444-8 (Version None)
Quarter: 2012Q1

REPORT INFORMATION
  Report Type: 
  Country: None (occurrence: None)
  Receive Date: 20120323
  Receipt Date: 20120319
  Transmission Date: 20120608
  Serious: Yes (Other)
  Sender: FDA-Public Use
  Company Number: US-PFIZER INC-2012027080

PATIENT
  Sex: Female
  Weight: 50.8 kg

DRUGS (4)
  1. HYDROCHLOROTHIAZIDE [Concomitant]
     Dosage: 25 MG, UNK
  2. LEVOTHYROXINE [Concomitant]
     Dosage: 50 UG, UNK
  3. PREMPRO [Suspect]
     Indication: OSTEOPOROSIS PROPHYLAXIS
  4. PREMPRO [Suspect]
     Indication: MENOPAUSE
     Dosage: 0.3/1.5 MG/DAILY
     Route: 048

REACTIONS (1)
  - HYPERTENSION [None]
